FAERS Safety Report 6156420-0 (Version None)
Quarter: 2009Q2

REPORT INFORMATION
  Report Type: 
  Country: None (occurrence: None)
  Receive Date: 20090413
  Receipt Date: 20090407
  Transmission Date: 20091009
  Serious: Yes (Hospitalization)
  Sender: FDA-Public Use
  Company Number: CHPA2009US08866

PATIENT
  Age: 48 Year
  Sex: Female

DRUGS (1)
  1. NICOTINE [Suspect]
     Indication: SMOKING CESSATION THERAPY
     Dosage: 21 MG,QD,TRANSDERMAL
     Route: 062
     Dates: start: 20090328, end: 20090407

REACTIONS (1)
  - MYOCARDIAL INFARCTION [None]
